FAERS Safety Report 19117142 (Version 2)
Quarter: 2021Q2

REPORT INFORMATION
  Report Type: Report from Study
  Country: None (occurrence: DE)
  Receive Date: 20210409
  Receipt Date: 20210414
  Transmission Date: 20210717
  Serious: No
  Sender: FDA-Public Use
  Company Number: DE-ABBVIE-21K-062-3850842-00

PATIENT
  Age: 36 Year
  Sex: Female
  Weight: 68 kg

DRUGS (1)
  1. HUMIRA [Suspect]
     Active Substance: ADALIMUMAB
     Indication: CROHN^S DISEASE
     Route: 058
     Dates: start: 20120401

REACTIONS (5)
  - Nail operation [Recovering/Resolving]
  - Melanocytic naevus [Recovered/Resolved]
  - Impaired healing [Recovering/Resolving]
  - Nail bed inflammation [Recovering/Resolving]
  - Nail operation [Recovering/Resolving]

NARRATIVE: CASE EVENT DATE: 202007
